FAERS Safety Report 20053144 (Version 2)
Quarter: 2021Q4

REPORT INFORMATION
  Report Type: Spontaneous
  Country: IT (occurrence: IT)
  Receive Date: 20211110
  Receipt Date: 20211210
  Transmission Date: 20220303
  Serious: Yes (Other)
  Sender: FDA-Public Use
  Company Number: None

PATIENT
  Age: 75 Year
  Sex: Female
  Weight: 60 kg

DRUGS (2)
  1. RIBOCICLIB [Suspect]
     Active Substance: RIBOCICLIB
     Indication: Breast cancer
     Dosage: 400 MG, CYCLIC
     Route: 048
     Dates: start: 20210723, end: 20211015
  2. FULVESTRANT [Concomitant]
     Active Substance: FULVESTRANT
     Indication: Breast cancer
     Dosage: 500 MG, CYCLIC
     Route: 030
     Dates: start: 20210723, end: 20210917

REACTIONS (7)
  - Blood bilirubin increased [Recovering/Resolving]
  - Hypertransaminasaemia [Recovering/Resolving]
  - Hepatitis acute [Unknown]
  - Jaundice [Unknown]
  - Fatigue [Unknown]
  - Chromaturia [Unknown]
  - Oedema peripheral [Unknown]

NARRATIVE: CASE EVENT DATE: 20211015
